FAERS Safety Report 21674970 (Version 1)
Quarter: 2022Q4

REPORT INFORMATION
  Report Type: Spontaneous
  Country: DE (occurrence: DE)
  Receive Date: 20221202
  Receipt Date: 20221202
  Transmission Date: 20230113
  Serious: Yes (Death, Hospitalization, Other)
  Sender: FDA-Public Use
  Company Number: DE-BAXTER-2022BAX024999

PATIENT
  Age: 68 Year
  Sex: Male

DRUGS (23)
  1. SODIUM CHLORIDE [Suspect]
     Active Substance: SODIUM CHLORIDE
     Indication: Cardiovascular disorder
     Dosage: AFTER PLP 500 ML
     Route: 042
  2. SODIUM CHLORIDE [Suspect]
     Active Substance: SODIUM CHLORIDE
     Dosage: AFTER PLP 500 ML
     Route: 042
     Dates: start: 20190218
  3. SODIUM CHLORIDE [Suspect]
     Active Substance: SODIUM CHLORIDE
     Dosage: AFTER PLP 500 ML
     Route: 042
     Dates: start: 20190115
  4. SODIUM CHLORIDE [Suspect]
     Active Substance: SODIUM CHLORIDE
     Dosage: AFTER PLP 500 ML
     Route: 042
     Dates: start: 20190206
  5. SODIUM CHLORIDE [Suspect]
     Active Substance: SODIUM CHLORIDE
     Dosage: BEFORE PLP 500 ML
     Route: 042
     Dates: start: 20190107
  6. GEMCITABINE [Suspect]
     Active Substance: GEMCITABINE
     Indication: Product used for unknown indication
     Dosage: 9TH CYCLE ABRAXANE/GEMCITABINE (75% OF STANDARD DOSE) DAY 8
     Route: 065
  7. GEMCITABINE [Suspect]
     Active Substance: GEMCITABINE
     Dosage: 11TH CYCLE ABRAXANE/GEMCITABINE (75% OF STANDARD DOSE) DAY 8
     Route: 065
     Dates: start: 20190320
  8. GEMCITABINE [Suspect]
     Active Substance: GEMCITABINE
     Dosage: 10TH CYCLE ABRAXANE/GEMCITABINE (75% OF THE STANDARD DOSE) DAY 8
     Route: 065
     Dates: start: 20190220
  9. GEMCITABINE [Suspect]
     Active Substance: GEMCITABINE
     Dosage: 9TH CYCLE ABRAXANE/GEMCITABINE (75% OF THE STANDARD DOSE) DAY 15
     Route: 065
     Dates: start: 20190130
  10. GEMCITABINE [Suspect]
     Active Substance: GEMCITABINE
     Dosage: 10TH CYCLE ABRAXANE/GEMCITABINE (75% OF STANDARD DOSE) DAY 1
     Route: 065
     Dates: start: 20190213
  11. GEMCITABINE [Suspect]
     Active Substance: GEMCITABINE
     Dosage: 10TH CYCLE ABRAXANE/GEMCITABINE (75% OF STANDARD DOSE) DAY 15
     Route: 065
     Dates: start: 20190227
  12. GEMCITABINE [Suspect]
     Active Substance: GEMCITABINE
     Dosage: 9TH CYCLE ABRAXANE/GEMCITABINE (75% OF STANDARD DOSE) DAY
     Route: 065
     Dates: start: 20190116
  13. GEMCITABINE [Suspect]
     Active Substance: GEMCITABINE
     Dosage: 11TH CYCLE ABRAXANE/GEMCITABINE (75% OF STANDARD DOSE) DAY 1
     Route: 065
     Dates: start: 20190313
  14. ABRAXANE [Suspect]
     Active Substance: PACLITAXEL
     Indication: Product used for unknown indication
     Dosage: 9TH CYCLE ABRAXANE/GEMCITABINE (75% OF THE STANDARD DOSE) DAY 15
     Route: 065
  15. ABRAXANE [Suspect]
     Active Substance: PACLITAXEL
     Dosage: 11TH CYCLE ABRAXANE/GEMCITABINE (75% OF STANDARD DOSE) DAY 8
     Route: 065
     Dates: start: 20190320
  16. ABRAXANE [Suspect]
     Active Substance: PACLITAXEL
     Dosage: 9TH CYCLE ABRAXANE/GEMCITABINE (75% OF STANDARD DOSE) DAY 1
     Route: 065
     Dates: start: 20190116
  17. ABRAXANE [Suspect]
     Active Substance: PACLITAXEL
     Dosage: 9TH CYCLE ABRAXANE/GEMCITABINE (75% OF STANDARD DOSE) DAY 8
     Route: 065
     Dates: start: 20190123
  18. ABRAXANE [Suspect]
     Active Substance: PACLITAXEL
     Dosage: ) 11TH CYCLE ABRAXANE/GEMCITABINE (75% OF STANDARD DOSE) DAY 1
     Route: 065
     Dates: start: 20190313
  19. ABRAXANE [Suspect]
     Active Substance: PACLITAXEL
     Dosage: 10TH CYCLE ABRAXANE/GEMCITABINE (75% OF STANDARD DOSE) DAY 15
     Route: 065
     Dates: start: 20190227
  20. ABRAXANE [Suspect]
     Active Substance: PACLITAXEL
     Dosage: 10TH CYCLE ABRAXANE/GEMCITABINE (75% OF THE STANDARD DOSE) DAY 8
     Route: 065
     Dates: start: 20190220
  21. ABRAXANE [Suspect]
     Active Substance: PACLITAXEL
     Dosage: 10TH CYCLE ABRAXANE/GEMCITABINE (75% OF STANDARD DOSE) DAY 1
     Route: 065
     Dates: start: 20190213
  22. OLIMEL E [Suspect]
     Active Substance: AMINO ACIDS\DEXTROSE\ELECTROLYTES NOS\SOYBEAN OIL
     Indication: Parenteral nutrition
     Dosage: UNK
     Route: 065
     Dates: start: 20190115
  23. CERNEVIT [Suspect]
     Active Substance: VITAMINS
     Indication: Parenteral nutrition
     Dosage: UNK
     Route: 065
     Dates: start: 20190115

REACTIONS (12)
  - Death [Fatal]
  - General physical health deterioration [None]
  - Dyspnoea [None]
  - Fatigue [None]
  - Taste disorder [None]
  - Decreased appetite [None]
  - Depressed mood [None]
  - Gait disturbance [None]
  - Diarrhoea [None]
  - Lip dry [None]
  - Nasal mucosal disorder [None]
  - Dizziness [None]

NARRATIVE: CASE EVENT DATE: 20190115
